FAERS Safety Report 7999268-4 (Version None)
Quarter: 2011Q4

REPORT INFORMATION
  Report Type: 
  Country: None (occurrence: None)
  Receive Date: 20111221
  Receipt Date: 20111215
  Transmission Date: 20120403
  Serious: Yes (Death)
  Sender: FDA-Public Use
  Company Number: US-BAXTER-2011BH039498

PATIENT
  Age: 79 Year
  Sex: Male

DRUGS (3)
  1. FRESENIUS [Suspect]
     Indication: PERITONEAL DIALYSIS
     Route: 033
     Dates: start: 20110902, end: 20110903
  2. DIANEAL [Suspect]
     Indication: PERITONEAL DIALYSIS
     Route: 033
     Dates: start: 20110601, end: 20110831
  3. DIANEAL [Suspect]
     Indication: PERITONEAL DIALYSIS
     Route: 033
     Dates: start: 20080401, end: 20110601

REACTIONS (1)
  - CARDIAC ARREST [None]
